FAERS Safety Report 5157633-7 (Version None)
Quarter: 2006Q4

REPORT INFORMATION
  Report Type: 
  Country: None (occurrence: None)
  Receive Date: 20061127
  Receipt Date: 20061026
  Transmission Date: 20070319
  Serious: Yes (Death)
  Sender: FDA-Public Use
  Company Number: IN-BRISTOL-MYERS SQUIBB COMPANY-13558499

PATIENT
  Age: 59 Year
  Sex: Male

DRUGS (3)
  1. BARACLUDE [Suspect]
     Indication: HEPATITIS B
     Route: 048
     Dates: start: 20060901
  2. BACLOFEN [Concomitant]
  3. FORCAN [Concomitant]
     Indication: CANDIDIASIS

REACTIONS (1)
  - DEATH [None]
